FAERS Safety Report 5736036-8 (Version None)
Quarter: 2008Q2

REPORT INFORMATION
  Report Type: 
  Country: None (occurrence: None)
  Receive Date: 20080513
  Receipt Date: 20080504
  Transmission Date: 20081010
  Serious: Yes (Hospitalization, Other)
  Sender: FDA-Public Use
  Company Number: US-AMGEN-STX277524

PATIENT
  Sex: Female

DRUGS (1)
  1. ENBREL [Suspect]
     Indication: ANKYLOSING SPONDYLITIS
     Route: 058
     Dates: start: 20000101

REACTIONS (6)
  - BRAIN MASS [None]
  - MIGRAINE [None]
  - NAUSEA [None]
  - PHOTOSENSITIVITY REACTION [None]
  - PNEUMONIA BACTERIAL [None]
  - VOMITING [None]
